FAERS Safety Report 8072578-0 (Version None)
Quarter: 2012Q1

REPORT INFORMATION
  Report Type: 
  Country: None (occurrence: None)
  Receive Date: 20120120
  Receipt Date: 20120103
  Transmission Date: 20120608
  Serious: Yes (Life-Threatening)
  Sender: FDA-Public Use
  Company Number: 2012SP000686

PATIENT
  Age: 52 Year
  Sex: Female
  Weight: 49 kg

DRUGS (4)
  1. ZOLPIDEM [Concomitant]
  2. METAMIZOL [Concomitant]
  3. POSACONAZOLE [Suspect]
     Indication: BACTERIAL INFECTION
     Dosage: ;IV
     Route: 042
     Dates: start: 20111201
  4. POSACONAZOLE [Suspect]
     Indication: ANTIFUNGAL PROPHYLAXIS
     Dosage: ;IV
     Route: 042
     Dates: start: 20111201

REACTIONS (1)
  - PNEUMOTHORAX [None]
